FAERS Safety Report 17141953 (Version 1)
Quarter: 2019Q4

REPORT INFORMATION
  Report Type: Spontaneous
  Country: US (occurrence: US)
  Receive Date: 20191211
  Receipt Date: 20191211
  Transmission Date: 20200122
  Serious: Yes (Hospitalization, Other)
  Sender: FDA-Public Use
  Company Number: US-ASTRAZENECA-2019SF75241

PATIENT
  Sex: Male

DRUGS (1)
  1. LOKELMA [Suspect]
     Active Substance: SODIUM ZIRCONIUM CYCLOSILICATE
     Route: 048

REACTIONS (4)
  - Renal disorder [Unknown]
  - Pulmonary oedema [Unknown]
  - Myelodysplastic syndrome [Unknown]
  - Hypoacusis [Unknown]
